FAERS Safety Report 7366037-8 (Version None)
Quarter: 2011Q1

REPORT INFORMATION
  Report Type: 
  Country: None (occurrence: None)
  Receive Date: 20110322
  Receipt Date: 20110308
  Transmission Date: 20110831
  Serious: Yes (Hospitalization)
  Sender: FDA-Public Use
  Company Number: US-JNJFOC-20070500314

PATIENT
  Sex: Female
  Weight: 42 kg

DRUGS (5)
  1. PREDNISONE [Concomitant]
  2. INFLIXIMAB [Suspect]
     Indication: INFLAMMATORY BOWEL DISEASE
     Route: 042
  3. INFLIXIMAB [Suspect]
     Dosage: TOTAL 2 INFUSIONS
     Route: 042
  4. AZATHIOPRINE [Concomitant]
  5. METRONIDAZOLE [Concomitant]

REACTIONS (1)
  - INTESTINAL OBSTRUCTION [None]
